FAERS Safety Report 8204397-6 (Version None)
Quarter: 2012Q1

REPORT INFORMATION
  Report Type: 
  Country: None (occurrence: None)
  Receive Date: 20120313
  Receipt Date: 20120313
  Transmission Date: 20120608
  Serious: Yes (Other)
  Sender: FDA-Public Use
  Company Number: None

PATIENT
  Age: 75 Year
  Sex: Female
  Weight: 79 kg

DRUGS (10)
  1. SEROQUEL [Concomitant]
  2. SPIRONOLACTONE [Concomitant]
  3. TORSEMIDE [Concomitant]
  4. NEXIUM [Concomitant]
  5. WARFARIN SODIUM [Concomitant]
  6. THIAMINE HCL [Concomitant]
  7. MULTI-VITAMIN [Concomitant]
  8. VITAMIN B-12 [Concomitant]
  9. FOLIC ACID [Concomitant]
  10. MEROPENEM [Suspect]

REACTIONS (1)
  - DRUG HYPERSENSITIVITY [None]
